FAERS Safety Report 24407466 (Version 1)
Quarter: 2024Q4

REPORT INFORMATION
  Report Type: Report from Study
  Country: CA (occurrence: CA)
  Receive Date: 20241007
  Receipt Date: 20241007
  Transmission Date: 20250115
  Serious: Yes (Other)
  Sender: TAKEDA
  Company Number: CA-TAKEDA-2024TUS096402

PATIENT
  Sex: Female

DRUGS (4)
  1. VEDOLIZUMAB [Suspect]
     Active Substance: VEDOLIZUMAB
     Indication: Crohn^s disease
     Dosage: 300 MILLIGRAM
     Route: 042
     Dates: start: 20240918
  2. METOPROLOL [Concomitant]
     Active Substance: METOPROLOL
     Indication: Heart rate irregular
     Dosage: 25 MILLIGRAM
  3. SYNTHROID [Concomitant]
     Active Substance: LEVOTHYROXINE SODIUM
     Dosage: UNK
  4. IRON [Concomitant]
     Active Substance: IRON
     Indication: Supplementation therapy
     Dosage: UNK

REACTIONS (8)
  - Cataract [Unknown]
  - Malaise [Unknown]
  - Abdominal pain [Unknown]
  - Decreased appetite [Unknown]
  - Headache [Unknown]
  - Influenza [Unknown]
  - Fatigue [Unknown]
  - Nausea [Unknown]
